FAERS Safety Report 11069892 (Version 1)
Quarter: 2015Q2

REPORT INFORMATION
  Report Type: Spontaneous
  Country: US (occurrence: US)
  Receive Date: 20150427
  Receipt Date: 20150427
  Transmission Date: 20150821
  Serious: No
  Sender: FDA-Public Use
  Company Number: US-ASTRAZENECA-2014SE90697

PATIENT
  Age: 68 Year
  Sex: Male
  Weight: 86.2 kg

DRUGS (4)
  1. BYDUREON [Suspect]
     Active Substance: EXENATIDE
     Indication: TYPE 2 DIABETES MELLITUS
     Dosage: 2MG ONCE A WEEK (PEN DISPOSABLE)
     Route: 058
     Dates: start: 201411
  2. UNKNOWN [Concomitant]
     Active Substance: UNSPECIFIED INGREDIENT
  3. BYDUREON [Suspect]
     Active Substance: EXENATIDE
     Indication: TYPE 2 DIABETES MELLITUS
     Route: 058
  4. BYDUREON [Suspect]
     Active Substance: EXENATIDE
     Indication: TYPE 2 DIABETES MELLITUS
     Dosage: 2MG ONCE A WEEK (VIAL + SYRINGE)
     Route: 058
     Dates: start: 201411

REACTIONS (4)
  - Injection site extravasation [Unknown]
  - Drug dispensing error [Not Recovered/Not Resolved]
  - Underdose [Unknown]
  - Urticaria [Recovered/Resolved]

NARRATIVE: CASE EVENT DATE: 201411
